FAERS Safety Report 9629874 (Version 2)
Quarter: 2013Q4

REPORT INFORMATION
  Report Type: Spontaneous
  Country: FR (occurrence: FR)
  Receive Date: 20131017
  Receipt Date: 20131209
  Transmission Date: 20140711
  Serious: Yes (Other)
  Sender: FDA-Public Use
  Company Number: FR-BRISTOL-MYERS SQUIBB COMPANY-19513134

PATIENT
  Age: 40 Year
  Sex: Female
  Weight: 90 kg

DRUGS (2)
  1. ABILIFY [Suspect]
     Indication: BIPOLAR DISORDER
     Route: 048
     Dates: start: 201209, end: 20130925
  2. LITHIUM [Suspect]
     Indication: BIPOLAR DISORDER
     Dosage: TABS
     Dates: start: 201209

REACTIONS (3)
  - Visual field defect [Recovered/Resolved]
  - Peripheral sensory neuropathy [Recovered/Resolved]
  - VIth nerve paralysis [Recovered/Resolved]
